FAERS Safety Report 9533972 (Version 4)
Quarter: 2014Q3

REPORT INFORMATION
  Report Type: Report from Study
  Country: FR (occurrence: FR)
  Receive Date: 20130918
  Receipt Date: 20140926
  Transmission Date: 20150326
  Serious: Yes (Disabling, Other)
  Sender: FDA-Public Use
  Company Number: FR-BAYER-2013-112358

PATIENT
  Age: 57 Year
  Sex: Male
  Weight: 88.2 kg

DRUGS (12)
  1. REGORAFENIB [Suspect]
     Active Substance: REGORAFENIB
     Indication: COLORECTAL CANCER METASTATIC
     Dosage: 160 MG, QD
     Route: 048
     Dates: start: 20130809
  2. REGORAFENIB [Suspect]
     Active Substance: REGORAFENIB
     Indication: COLORECTAL CANCER METASTATIC
     Dosage: 120 MG, QD
     Route: 048
     Dates: start: 20130903
  3. INEXIUM [Concomitant]
     Active Substance: ESOMEPRAZOLE
     Dosage: 20
     Route: 048
  4. REGORAFENIB [Suspect]
     Active Substance: REGORAFENIB
     Indication: COLORECTAL CANCER METASTATIC
     Dosage: 80 MG, QD
     Route: 048
     Dates: start: 20131002
  5. EZETROL [Concomitant]
     Active Substance: EZETIMIBE
     Indication: HYPERCHOLESTEROLAEMIA
     Dosage: 10 MG, UNK
     Route: 048
     Dates: start: 1999
  6. APROVEL [Concomitant]
     Active Substance: IRBESARTAN
     Indication: HYPERTENSION
     Dosage: DAILY DOSE 30 MG
     Route: 048
  7. PREVISCAN [Concomitant]
     Active Substance: FLUINDIONE
     Indication: CORONARY ARTERIAL STENT INSERTION
     Dosage: UNK
     Route: 048
     Dates: start: 2009
  8. KARDEGIC [Concomitant]
     Active Substance: ASPIRIN LYSINE
     Dosage: UNK
     Route: 048
     Dates: start: 2013
  9. BETASERC [Concomitant]
     Active Substance: BETAHISTINE
     Indication: DIZZINESS
     Dosage: DAILY DOSE 20 MG
     Route: 048
  10. FUROSEMIDE. [Concomitant]
     Active Substance: FUROSEMIDE
     Indication: HYPERTENSION
     Dosage: 20
     Route: 048
     Dates: start: 1999
  11. CRESTOR [Concomitant]
     Active Substance: ROSUVASTATIN CALCIUM
     Indication: HYPERCHOLESTEROLAEMIA
     Dosage: DAILY DOSE 20 MG
     Route: 048
     Dates: start: 1999
  12. BISOPROLOL [Concomitant]
     Active Substance: BISOPROLOL
     Indication: HYPERTENSION
     Dosage: 25
     Route: 048
     Dates: start: 1999

REACTIONS (7)
  - Decreased appetite [Unknown]
  - Alanine aminotransferase increased [Unknown]
  - Aspartate aminotransferase increased [Unknown]
  - Palmar-plantar erythrodysaesthesia syndrome [Not Recovered/Not Resolved]
  - Cachexia [Unknown]
  - Hypertension [None]
  - Palmar-plantar erythrodysaesthesia syndrome [Unknown]

NARRATIVE: CASE EVENT DATE: 20130812
